FAERS Safety Report 8960569 (Version 2)
Quarter: 2013Q1

REPORT INFORMATION
  Report Type: Spontaneous
  Country: US (occurrence: None)
  Receive Date: 20121203
  Receipt Date: 20121210
  Transmission Date: 20140127
  Serious: Yes (Hospitalization, Other)
  Sender: FDA-Public Use
  Company Number: 2012-7902

PATIENT
  Age: 14 Year
  Sex: Male
  Weight: 33.5 kg

DRUGS (6)
  1. INCRELEX [Suspect]
     Indication: BODY HEIGHT BELOW NORMAL
     Dosage: (3.7 MG, 2 IN 1 D)
     Route: 058
     Dates: start: 201205, end: 20121101
  2. INCRELEX [Suspect]
     Indication: OFF LABEL USE
     Dosage: (3.7 MG, 2 IN 1 D)
     Route: 058
     Dates: start: 201205, end: 20121101
  3. HYDROXYUREA (HYDROXYCARBAMIDE) [Concomitant]
  4. OSCAL (CALCIUM CARBONATE) [Concomitant]
  5. IMIPRAMINE (IMIPRAMINE) [Concomitant]
  6. FOLIC ACID (FOLIC ACID) [Concomitant]

REACTIONS (10)
  - Hepatic infection [None]
  - Chest pain [None]
  - Dyspnoea [None]
  - Fatigue [None]
  - Asthenia [None]
  - Pyrexia [None]
  - Rhinorrhoea [None]
  - Nasal congestion [None]
  - Eating disorder [None]
  - Liver abscess [None]
